FAERS Safety Report 19502285 (Version 1)
Quarter: 2021Q3

REPORT INFORMATION
  Report Type: Other
  Country: US (occurrence: US)
  Receive Date: 20210707
  Receipt Date: 20210707
  Transmission Date: 20211014
  Serious: Yes (Other)
  Sender: FDA-Public Use
  Company Number: US-ROCHE-2859959

PATIENT

DRUGS (5)
  1. IPILIMUMAB [Suspect]
     Active Substance: IPILIMUMAB
     Indication: IMMUNOSUPPRESSION
     Route: 065
  2. ATEZOLIZUMAB. [Suspect]
     Active Substance: ATEZOLIZUMAB
     Indication: IMMUNOSUPPRESSION
     Route: 065
  3. PEMBROLIZUMAB. [Suspect]
     Active Substance: PEMBROLIZUMAB
     Indication: IMMUNOSUPPRESSION
     Route: 065
  4. AVELUMAB [Suspect]
     Active Substance: AVELUMAB
     Indication: IMMUNOSUPPRESSION
     Route: 065
  5. NIVOLUMAB [Suspect]
     Active Substance: NIVOLUMAB
     Indication: IMMUNOSUPPRESSION
     Route: 065

REACTIONS (4)
  - Colitis [Unknown]
  - Encephalopathy [Unknown]
  - Hepatitis [Unknown]
  - Adrenal insufficiency [Unknown]
